FAERS Safety Report 16363812 (Version 4)
Quarter: 2019Q3

REPORT INFORMATION
  Report Type: Spontaneous
  Country: BR (occurrence: BR)
  Receive Date: 20190528
  Receipt Date: 20190730
  Transmission Date: 20191004
  Serious: Yes (Other)
  Sender: FDA-Public Use
  Company Number: BR-B.I. PHARMACEUTICALS,INC./RIDGEFIELD-2019-MI-000410

PATIENT
  Age: 84 Year
  Sex: Male
  Weight: 80 kg

DRUGS (7)
  1. ALOPURINOL [Concomitant]
     Active Substance: ALLOPURINOL
     Indication: PRODUCT USED FOR UNKNOWN INDICATION
     Dosage: ALOPURINOL 1 TABLET ONCE DAILY / ORAL ROUTE
     Route: 048
  2. ROSUVASTATINA [Concomitant]
     Active Substance: ROSUVASTATIN
     Indication: CARDIAC DISORDER
     Dosage: ROSUVASTATINA 1 TABLET ONCE DAILY
     Route: 065
  3. RETEMIC [Concomitant]
     Active Substance: OXYBUTYNIN CHLORIDE
     Indication: PROSTATOMEGALY
     Dosage: RETEMIQ 1 TABLET ONCE DAILY / ORAL ROUTE
     Route: 048
  4. LASIX [Concomitant]
     Active Substance: FUROSEMIDE
     Indication: HYPERTENSION
     Dosage: LASIX 1 TABLET ONCE DAILY / ORAL ROUTE
     Route: 048
  5. ELIQUIS [Concomitant]
     Active Substance: APIXABAN
     Indication: PRODUCT USED FOR UNKNOWN INDICATION
     Dosage: ELIQUIS 1 TABLET TWICE DAILY / ORAL ROUTE
     Route: 048
  6. CONCOR [Concomitant]
     Active Substance: BISOPROLOL FUMARATE
     Indication: CARDIAC DISORDER
     Dosage: CONCOR 1 TABLET ONCE DAILY / ORAL ROUTE
     Route: 048
  7. MICARDIS HCT [Suspect]
     Active Substance: HYDROCHLOROTHIAZIDE\TELMISARTAN
     Indication: HYPERTENSION
     Dosage: MICARDIS HCT 80/12.5 (MG) 1 TABLET ONCE DAILY / ORAL ROUTE
     Route: 048
     Dates: start: 2017

REACTIONS (4)
  - Syncope [Recovered/Resolved]
  - Seizure [Recovered/Resolved]
  - Product quality issue [Unknown]
  - Blood pressure abnormal [Recovered/Resolved]

NARRATIVE: CASE EVENT DATE: 20190515
